FAERS Safety Report 23634685 (Version 2)
Quarter: 2024Q3

REPORT INFORMATION
  Report Type: Report from Study
  Country: DE (occurrence: DE)
  Receive Date: 20240315
  Receipt Date: 20240912
  Transmission Date: 20241017
  Serious: No
  Sender: ROCHE
  Company Number: DE-ROCHE-3414789

PATIENT
  Age: 36 Year
  Sex: Female
  Weight: 67.0 kg

DRUGS (17)
  1. OCREVUS [Suspect]
     Active Substance: OCRELIZUMAB
     Indication: Relapsing multiple sclerosis
     Route: 042
     Dates: start: 20190128, end: 20190211
  2. OCREVUS [Suspect]
     Active Substance: OCRELIZUMAB
     Dosage: MOST RECENT DOSE 23/MAR/2021
     Route: 042
     Dates: start: 20190819, end: 20210323
  3. OZANIMOD [Suspect]
     Active Substance: OZANIMOD
     Indication: Relapsing multiple sclerosis
     Route: 048
     Dates: start: 20220630
  4. CHLORHEXIDINE HYDROCHLORIDE\DEXAMETHASONE\NYSTATIN [Concomitant]
     Active Substance: CHLORHEXIDINE HYDROCHLORIDE\DEXAMETHASONE\NYSTATIN
     Indication: Pruritus
     Dosage: DEFINITION OF THE INTERVAL: AS REQUIRED
     Route: 067
  5. METAMIZOL [Concomitant]
     Active Substance: METAMIZOLE SODIUM
     Indication: Prophylaxis
     Route: 048
     Dates: start: 20201016
  6. PFIZER-BIONTECH COVID-19 VACCINE [Concomitant]
     Active Substance: TOZINAMERAN
     Indication: COVID-19 immunisation
     Route: 030
     Dates: start: 20210701, end: 20210701
  7. PFIZER-BIONTECH COVID-19 VACCINE [Concomitant]
     Active Substance: TOZINAMERAN
     Route: 030
     Dates: start: 20211208, end: 20211208
  8. PFIZER-BIONTECH COVID-19 VACCINE [Concomitant]
     Active Substance: TOZINAMERAN
     Route: 030
     Dates: start: 20210813, end: 20210813
  9. PREDNISOLONE [Concomitant]
     Active Substance: PREDNISOLONE
     Indication: Prophylaxis
     Dosage: DEFINITION OF THE INTERVAL: AS REQUIRED
     Route: 048
     Dates: end: 202205
  10. PREDNISOLONE [Concomitant]
     Active Substance: PREDNISOLONE
     Dates: start: 20200916, end: 20200916
  11. PREDNISOLONE [Concomitant]
     Active Substance: PREDNISOLONE
     Route: 048
     Dates: start: 20200930, end: 20201001
  12. VIGANTOL [Concomitant]
     Indication: Prophylaxis
     Dosage: 2000
     Route: 048
     Dates: start: 20230624
  13. SALOFALK [Concomitant]
     Indication: Crohn^s disease
     Route: 054
     Dates: start: 202106, end: 202205
  14. CALCIUM\CHOLECALCIFEROL [Concomitant]
     Active Substance: CALCIUM\CHOLECALCIFEROL
     Indication: Prophylaxis
     Route: 048
     Dates: start: 20201016
  15. RANITIDINE HYDROCHLORIDE [Concomitant]
     Active Substance: RANITIDINE HYDROCHLORIDE
     Indication: Premedication
     Route: 042
     Dates: start: 20190128, end: 20200820
  16. PANTOPRAZOLE SODIUM [Concomitant]
     Active Substance: PANTOPRAZOLE SODIUM
     Indication: Prophylaxis
     Route: 048
     Dates: start: 20201016, end: 202205
  17. XYLOCAINE [Concomitant]
     Active Substance: LIDOCAINE HYDROCHLORIDE
     Indication: Neurodermatitis
     Dosage: DEFINITION OF THE INTERVAL: AS REQUIRED
     Route: 062

REACTIONS (4)
  - Adjustment disorder [Unknown]
  - Exostosis [Recovered/Resolved]
  - Lymphocyte count decreased [Unknown]
  - COVID-19 [Recovered/Resolved]

NARRATIVE: CASE EVENT DATE: 20230201
